FAERS Safety Report 15322239 (Version 1)
Quarter: 2018Q3

REPORT INFORMATION
  Report Type: Spontaneous
  Country: US (occurrence: US)
  Receive Date: 20180827
  Receipt Date: 20180827
  Transmission Date: 20181010
  Serious: Yes (Other)
  Sender: FDA-Public Use
  Company Number: US-HIKMA PHARMACEUTICALS USA INC.-US-H14001-18-07043

PATIENT
  Sex: Male
  Weight: 65.32 kg

DRUGS (6)
  1. MORPHINE [Suspect]
     Active Substance: MORPHINE
     Indication: PAIN
     Route: 048
  2. LYRICA [Concomitant]
     Active Substance: PREGABALIN
     Indication: OSTEOPOROSIS
     Route: 048
     Dates: start: 201708
  3. LYRICA [Concomitant]
     Active Substance: PREGABALIN
     Route: 048
     Dates: start: 201708
  4. MORPHINE [Suspect]
     Active Substance: MORPHINE
     Route: 048
  5. MORPHINE [Suspect]
     Active Substance: MORPHINE
     Route: 048
  6. GABAPENTIN. [Concomitant]
     Active Substance: GABAPENTIN
     Indication: OSTEOPOROSIS
     Route: 048
     Dates: start: 201712, end: 201801

REACTIONS (2)
  - Gastrointestinal disorder [Unknown]
  - Intentional product use issue [Not Recovered/Not Resolved]
